FAERS Safety Report 21668460 (Version 1)
Quarter: 2022Q4

REPORT INFORMATION
  Report Type: Spontaneous
  Country: US (occurrence: US)
  Receive Date: 20221201
  Receipt Date: 20221201
  Transmission Date: 20230113
  Serious: Yes (Hospitalization)
  Sender: FDA-Public Use
  Company Number: US-MYLANLABS-202200932886

PATIENT
  Age: 65 Year
  Sex: Female

DRUGS (17)
  1. PREGABALIN [Suspect]
     Active Substance: PREGABALIN
     Indication: Neuralgia
     Dosage: 50 MILLIGRAM, TID (3 TIMES A DAY)
     Route: 048
  2. PREGABALIN [Suspect]
     Active Substance: PREGABALIN
     Indication: Neuropathy peripheral
     Dosage: 100 MILLIGRAM, TID (3 TIME A DAY)
     Route: 048
  3. PREGABALIN [Suspect]
     Active Substance: PREGABALIN
     Dosage: 75 MG, 2X/DAY
     Route: 065
  4. PREGABALIN [Suspect]
     Active Substance: PREGABALIN
     Dosage: 50 MG, 2X/DAY
     Route: 065
  5. POMALIDOMIDE [Suspect]
     Active Substance: POMALIDOMIDE
     Indication: Plasma cell myeloma
     Dosage: UNK
     Route: 065
  6. METHADONE HYDROCHLORIDE [Suspect]
     Active Substance: METHADONE HYDROCHLORIDE
     Indication: Cancer pain
     Dosage: 10 MILLIGRAM, QD (5 DAYS)
     Route: 048
  7. METHADONE HYDROCHLORIDE [Suspect]
     Active Substance: METHADONE HYDROCHLORIDE
     Dosage: 10 MILLIGRAM, TID (3 TIMES A DAY)
     Route: 048
  8. METHADONE HYDROCHLORIDE [Suspect]
     Active Substance: METHADONE HYDROCHLORIDE
     Dosage: 20 MILLIGRAM, QD (5 DAYS)
     Route: 048
  9. METHADONE [Concomitant]
     Active Substance: METHADONE HYDROCHLORIDE
     Indication: Back pain
     Dosage: 10 MG, 2X/DAY
     Route: 048
  10. METHADONE [Concomitant]
     Active Substance: METHADONE HYDROCHLORIDE
     Dosage: DOSING WAS INCREASED TO 10 MG BY MOUTH(ONE MONTH)
     Route: 048
  11. METHADONE [Concomitant]
     Active Substance: METHADONE HYDROCHLORIDE
     Dosage: 20 MG, 2X/DAY(WAS ADJUSTED ONE MONTH PRIOR TO A HOSPITAL ADMISSION)
     Route: 048
  12. METHADONE [Concomitant]
     Active Substance: METHADONE HYDROCHLORIDE
     Dosage: FIVE DAYS AFTER HER METHADONE WAS INCREASED TO 20 MG
     Route: 048
  13. METHADONE [Concomitant]
     Active Substance: METHADONE HYDROCHLORIDE
     Dosage: 10 MG DECREASE IN METHADONE PER DAY
     Route: 048
  14. METHADONE [Concomitant]
     Active Substance: METHADONE HYDROCHLORIDE
     Dosage: METHADONE WAS THEN FURTHER DECREASED TO 10MG
     Route: 048
  15. HYDROMORPHONE [Concomitant]
     Active Substance: HYDROMORPHONE
     Indication: Pain
     Dosage: 4 MILLIGRAM, PRN ( AS NECCESSARY)
     Route: 048
  16. HYDROMORPHONE [Concomitant]
     Active Substance: HYDROMORPHONE
     Dosage: THREE TO FOUR DOSES OF HYDROMORPHONE PER DAY IN THE HOSPITAL
     Route: 065
  17. GABAPENTIN [Concomitant]
     Active Substance: GABAPENTIN
     Indication: Neuropathy peripheral
     Dosage: 300 MILLIGRAM, QD
     Route: 048

REACTIONS (8)
  - Neuropathy peripheral [Recovered/Resolved]
  - Somnolence [Recovered/Resolved]
  - Abnormal dreams [Recovered/Resolved]
  - Sleep disorder [Unknown]
  - Decreased activity [Unknown]
  - Motor dysfunction [Unknown]
  - Gait disturbance [Unknown]
  - Walking aid user [Unknown]
